FAERS Safety Report 13511080 (Version 2)
Quarter: 2017Q2

REPORT INFORMATION
  Report Type: Spontaneous
  Country: RS (occurrence: RS)
  Receive Date: 20170503
  Receipt Date: 20170509
  Transmission Date: 20170830
  Serious: Yes (Other)
  Sender: FDA-Public Use
  Company Number: RS-GEHC-2017CSU001097

PATIENT

DRUGS (1)
  1. OMNIPAQUE [Suspect]
     Active Substance: IOHEXOL
     Indication: NEPHROLITHIASIS
     Dosage: 35 ML, SINGLE
     Route: 042
     Dates: start: 20170411, end: 20170411

REACTIONS (8)
  - Erythema [Recovered/Resolved]
  - Heart rate increased [Recovered/Resolved]
  - Retching [Recovered/Resolved]
  - Throat irritation [Recovered/Resolved]
  - Suffocation feeling [Recovered/Resolved]
  - Cough [Recovered/Resolved]
  - Blood pressure systolic increased [Recovered/Resolved]
  - Nausea [Recovered/Resolved]

NARRATIVE: CASE EVENT DATE: 20170411
